FAERS Safety Report 21453042 (Version 3)
Quarter: 2022Q4

REPORT INFORMATION
  Report Type: Spontaneous
  Country: DE (occurrence: DE)
  Receive Date: 20221013
  Receipt Date: 20221102
  Transmission Date: 20230112
  Serious: Yes (Death, Hospitalization)
  Sender: FDA-Public Use
  Company Number: DE-PEI-202200141124

PATIENT
  Age: 29 Year
  Sex: Male

DRUGS (3)
  1. OCRELIZUMAB [Suspect]
     Active Substance: OCRELIZUMAB
     Indication: Multiple sclerosis
     Dosage: MOST RECENT DOSE ADMINISTERED ON 02/MAR/2022
     Route: 065
     Dates: start: 201908
  2. DALFAMPRIDINE [Concomitant]
     Active Substance: DALFAMPRIDINE
  3. NABIXIMOLS [Concomitant]
     Active Substance: NABIXIMOLS
     Dates: start: 20130710

REACTIONS (5)
  - Gastrointestinal haemorrhage [Fatal]
  - Lymphopenia [Fatal]
  - Thrombotic thrombocytopenic purpura [Fatal]
  - Pancreatic carcinoma [Fatal]
  - Infection [Fatal]

NARRATIVE: CASE EVENT DATE: 20220812
